FAERS Safety Report 11497492 (Version 2)
Quarter: 2015Q3

REPORT INFORMATION
  Report Type: Report from Study
  Country: US (occurrence: US)
  Receive Date: 20150911
  Receipt Date: 20150917
  Transmission Date: 20151125
  Serious: Yes (Other)
  Sender: FDA-Public Use
  Company Number: US-BAXALTA-2015BLT001322

PATIENT
  Age: 54 Year
  Sex: Female

DRUGS (5)
  1. HYQVIA [Suspect]
     Active Substance: HUMAN IMMUNOGLOBULIN G\HYALURONIDASE RECOMBINANT HUMAN
     Indication: IMMUNODEFICIENCY COMMON VARIABLE
     Dosage: RAMP UP
     Route: 058
     Dates: start: 20150819
  2. HYQVIA [Suspect]
     Active Substance: HUMAN IMMUNOGLOBULIN G\HYALURONIDASE RECOMBINANT HUMAN
     Dosage: 40 G, 1X A MONTH
     Route: 058
     Dates: start: 2015
  3. BENADRYL [Concomitant]
     Active Substance: DIPHENHYDRAMINE HYDROCHLORIDE
     Indication: PREMEDICATION
     Route: 065
  4. HYQVIA [Suspect]
     Active Substance: HUMAN IMMUNOGLOBULIN G\HYALURONIDASE RECOMBINANT HUMAN
     Dosage: RAMP UP
     Route: 058
     Dates: start: 20150901
  5. TYLENOL [Concomitant]
     Active Substance: ACETAMINOPHEN
     Indication: PREMEDICATION
     Route: 065

REACTIONS (7)
  - Migraine [Not Recovered/Not Resolved]
  - Gait disturbance [Recovered/Resolved]
  - Insomnia [Not Recovered/Not Resolved]
  - Infusion site swelling [Recovered/Resolved]
  - Somnolence [Recovered/Resolved]
  - Sinusitis [Recovering/Resolving]
  - Infusion site pain [Not Recovered/Not Resolved]

NARRATIVE: CASE EVENT DATE: 20150819
